FAERS Safety Report 7530397-5 (Version None)
Quarter: 2011Q2

REPORT INFORMATION
  Report Type: 
  Country: None (occurrence: None)
  Receive Date: 20110607
  Receipt Date: 20110526
  Transmission Date: 20111010
  Serious: Yes (Hospitalization)
  Sender: FDA-Public Use
  Company Number: US-ELI_LILLY_AND_COMPANY-US201105005630

PATIENT
  Sex: Female

DRUGS (4)
  1. ARICEPT [Concomitant]
  2. CELEXA [Concomitant]
     Dosage: UNK
  3. ZYPREXA [Suspect]
     Indication: DEMENTIA
     Dosage: 2.5 MG, BID
     Dates: start: 20110301
  4. DESYREL [Concomitant]

REACTIONS (10)
  - HOSPITALISATION [None]
  - FOOD CRAVING [None]
  - BALANCE DISORDER [None]
  - OFF LABEL USE [None]
  - SLEEP DISORDER [None]
  - MENTAL IMPAIRMENT [None]
  - DEMENTIA ALZHEIMER'S TYPE [None]
  - TREMOR [None]
  - SOMNOLENCE [None]
  - ABNORMAL BEHAVIOUR [None]
